FAERS Safety Report 23975889 (Version 2)
Quarter: 2024Q3

REPORT INFORMATION
  Report Type: Report from Study
  Country: CA (occurrence: CA)
  Receive Date: 20240614
  Receipt Date: 20240713
  Transmission Date: 20241016
  Serious: Yes (Other)
  Sender: TEVA
  Company Number: CA-TEVA-VS-3207528

PATIENT
  Age: 58 Year
  Sex: Male

DRUGS (3)
  1. AJOVY [Suspect]
     Active Substance: FREMANEZUMAB-VFRM
     Indication: Migraine prophylaxis
     Route: 058
     Dates: start: 20230718
  2. TOPIRAMATE [Concomitant]
     Active Substance: TOPIRAMATE
     Indication: Product used for unknown indication
     Route: 065
  3. NORTRIPTYLINE [Concomitant]
     Active Substance: NORTRIPTYLINE
     Indication: Product used for unknown indication
     Route: 065

REACTIONS (6)
  - Epididymitis [Not Recovered/Not Resolved]
  - Weight decreased [Unknown]
  - Testicular pain [Unknown]
  - Diarrhoea [Unknown]
  - Urinary retention [Unknown]
  - Testicular swelling [Unknown]

NARRATIVE: CASE EVENT DATE: 20230101
